FAERS Safety Report 9152936 (Version 1)
Quarter: 2013Q1

REPORT INFORMATION
  Report Type: Spontaneous
  Country: US (occurrence: US)
  Receive Date: 20130205
  Receipt Date: 20130205
  Transmission Date: 20140127
  Serious: Yes (Other)
  Sender: FDA-Public Use
  Company Number: US-RB-047739-12

PATIENT
  Sex: Female

DRUGS (5)
  1. SUBOXONE FILM [Suspect]
     Indication: DRUG DEPENDENCE
     Dosage: SUBOXONE FILM
     Route: 060
     Dates: start: 201206, end: 201212
  2. DILANTIN [Concomitant]
     Indication: EPILEPSY
     Dosage: DOSING DETAILS UNKNOWN
     Route: 065
     Dates: start: 2006
  3. DEPAKOTE [Concomitant]
     Indication: EPILEPSY
     Dosage: DOSING DETAILS UNKNOWN
     Route: 065
     Dates: start: 2006
  4. XANAX [Concomitant]
     Indication: BIPOLAR DISORDER
     Dosage: DOSING DETAILS UNKNOWN
     Route: 065
     Dates: start: 201205
  5. XANAX [Concomitant]
     Indication: ANXIETY DISORDER
     Dosage: DOSING DETAILS UNKNOWN
     Route: 065
     Dates: start: 201205

REACTIONS (4)
  - Therapeutic response unexpected [Recovered/Resolved]
  - Drug withdrawal syndrome [Recovered/Resolved]
  - Drug withdrawal convulsions [Recovered/Resolved]
  - Condition aggravated [Recovered/Resolved]
